FAERS Safety Report 7615154 (Version 33)
Quarter: 2014Q2

REPORT INFORMATION
  Report Type: Spontaneous
  Country: US (occurrence: US)
  Receive Date: 20101003
  Receipt Date: 20140604
  Transmission Date: 20141212
  Serious: Yes (Death, Life-Threatening, Hospitalization, Other)
  Sender: FDA-Public Use
  Company Number: PHEH2010US03844

PATIENT
  Sex: Male

DRUGS (55)
  1. ZOMETA [Suspect]
     Dosage: 4 MG, QMO
     Route: 041
  2. STEROIDS NOS [Suspect]
  3. ALBUTEROL [Concomitant]
     Route: 048
  4. CODEINE [Concomitant]
  5. PENICILLIN VK [Concomitant]
     Route: 048
  6. SULFAMETHOXAZOLE [Concomitant]
     Route: 048
  7. TRIMETHOPRIM [Concomitant]
  8. KEFZOL [Concomitant]
     Route: 042
  9. AMPICILLIN [Concomitant]
     Route: 042
  10. CLINDAMYCIN [Concomitant]
     Route: 042
  11. CHLORHEXIDINE GLUCONATE [Concomitant]
  12. MOMETASONE FUROATE [Concomitant]
  13. MULTIVITAMINS [Concomitant]
     Route: 048
  14. OMEPRAZOLE [Concomitant]
     Dosage: 20 MG, BID
     Route: 048
  15. TEMAZEPAM [Concomitant]
     Dosage: 30 MG, QD
     Route: 048
  16. INDOMETHACIN [Concomitant]
  17. HYDROCHLOROTHIAZIDE [Concomitant]
  18. ZESTRIL [Concomitant]
  19. PERCOCET [Concomitant]
  20. IBUPROFEN [Concomitant]
  21. CROMOLYN [Concomitant]
     Dosage: 2 DRP, QID
  22. GABAPENTIN [Concomitant]
     Dosage: 1 DF, QHS
     Route: 048
  23. CYCLOBENZAPRINE HYDROCHLORIDE [Concomitant]
     Dosage: 1 DF, TID
     Route: 048
  24. TRAZODONE HYDROCHLORIDE [Concomitant]
     Dosage: 2 DF, QHS
     Route: 048
  25. ACETAMINOPHEN [Concomitant]
  26. OXYCODONE HYDROCHLORIDE [Concomitant]
     Dosage: 1 DF, BID
     Route: 048
  27. FLUNISOLIDE [Concomitant]
  28. CHLORPHENIRAMINE MALEATE [Concomitant]
  29. DIPHENHYDRAMINE HYDROCHLORIDE [Concomitant]
     Dosage: 1 DF, Q6H
     Route: 048
  30. HYDROMORPHONE [Concomitant]
     Dosage: 4 MG, QID
     Route: 048
  31. CARISOPRODOL [Concomitant]
     Dosage: 1 DF, QID
  32. AMOXICILLIN [Concomitant]
     Dosage: 1 DF, Q8H
     Route: 048
  33. PROCHLORPERAZINE MALEATE [Concomitant]
     Dosage: 2 DF, TID
     Route: 048
  34. LEVOTHYROXINE SODIUM [Concomitant]
     Dosage: 1 DF, QD
     Route: 048
  35. ACYCLOVIR [Concomitant]
     Dosage: 1 DF, Q4H
     Route: 048
  36. VENLAFAXINE HYDROCHLORIDE [Concomitant]
     Dosage: 1 DF, QHS
     Route: 048
  37. ENOXAPARIN [Concomitant]
  38. PREDNISONE [Concomitant]
  39. LEVETIRACETAM [Concomitant]
     Dosage: 4 DF, BID
     Route: 048
  40. FLUCONAZOLE [Concomitant]
  41. METHOCARBAMOL [Concomitant]
     Dosage: 1 DF, TID
     Route: 048
  42. WARFARIN SODIUM [Concomitant]
     Dosage: 1 DF, QHS
     Route: 048
  43. DARBEPOETIN ALFA [Concomitant]
     Route: 058
  44. BORTEZOMIB [Concomitant]
     Route: 042
  45. SALSALATE [Concomitant]
     Dosage: 1 DF, TID
     Route: 048
  46. FELODIPINE [Concomitant]
     Dosage: 1 DF, QD
     Route: 048
  47. DICLOFENAC SODIUM [Concomitant]
     Dosage: 1 DF, BID
     Route: 048
  48. RANITIDINE HYDROCHLORIDE [Concomitant]
     Dosage: 1 DF, BID
     Route: 048
  49. SOMA [Concomitant]
     Dosage: 350 MG, TID
  50. ZOLOFT (SERTRALINE HYDROCHLORIDE) [Concomitant]
  51. DILAUDID [Concomitant]
  52. MAALOX [Concomitant]
  53. GRANULOCYTE COLONY-STIMULATING FACTOR NOS [Concomitant]
     Dosage: 420 UG, BID
     Route: 058
  54. VANCOMYCIN [Concomitant]
     Dosage: 2 G/500 ML, UNK
     Route: 042
  55. CEFTAZIDIME [Concomitant]

REACTIONS (177)
  - Plasma cell myeloma [Fatal]
  - Suicide attempt [Unknown]
  - Troponin increased [Unknown]
  - Deep vein thrombosis postoperative [Unknown]
  - Neuropathy peripheral [Unknown]
  - Osteonecrosis of jaw [Unknown]
  - Pain [Unknown]
  - Infection [Unknown]
  - Injury [Unknown]
  - Deformity [Unknown]
  - Stress [Unknown]
  - Physical disability [Unknown]
  - Swelling face [Unknown]
  - Exposed bone in jaw [Unknown]
  - Tooth loss [Unknown]
  - Primary sequestrum [Unknown]
  - Hepatitis C [Unknown]
  - Amyloidosis [Unknown]
  - Hypertension [Unknown]
  - Hypothyroidism [Unknown]
  - Carpal tunnel syndrome [Unknown]
  - Rib fracture [Unknown]
  - Inguinal hernia [Unknown]
  - Depression [Unknown]
  - Adrenal insufficiency [Unknown]
  - Hepatitis B [Unknown]
  - Convulsion [Unknown]
  - Asthma [Unknown]
  - Anhedonia [Unknown]
  - Generalised oedema [Unknown]
  - Metastases to bone [Unknown]
  - Osteolysis [Unknown]
  - Hypoxia [Recovered/Resolved]
  - Neutropenia [Unknown]
  - Orthostatic hypotension [Unknown]
  - Presyncope [Unknown]
  - Joint swelling [Unknown]
  - Spondylolisthesis [Unknown]
  - Disturbance in attention [Unknown]
  - Actinomycosis [Unknown]
  - Pharyngitis [Unknown]
  - Ear pain [Unknown]
  - Dyspnoea [Unknown]
  - Presbyopia [Unknown]
  - Cough [Unknown]
  - Cataract [Unknown]
  - Conjunctivitis allergic [Unknown]
  - Adjustment disorder [Unknown]
  - Abdominal pain [Unknown]
  - Nausea [Unknown]
  - Arthralgia [Unknown]
  - Dry eye [Unknown]
  - Herpes simplex [Unknown]
  - Insomnia [Unknown]
  - Anaemia [Unknown]
  - Cervical radiculopathy [Unknown]
  - Osteopenia [Unknown]
  - Diarrhoea [Unknown]
  - Pain in extremity [Unknown]
  - Macroglossia [Unknown]
  - Speech disorder [Unknown]
  - Neck pain [Unknown]
  - Constipation [Unknown]
  - Hypersensitivity [Unknown]
  - Arthritis [Unknown]
  - Periorbital haemorrhage [Unknown]
  - Cholecystitis [Unknown]
  - Myopathy [Unknown]
  - Tremor [Unknown]
  - Venous thrombosis [Unknown]
  - Exostosis [Unknown]
  - Memory impairment [Unknown]
  - Cholelithiasis [Unknown]
  - Syncope [Unknown]
  - Clavicle fracture [Unknown]
  - Chondrocalcinosis [Unknown]
  - Atelectasis [Unknown]
  - Bone deformity [Unknown]
  - Mental status changes [Unknown]
  - Fall [Unknown]
  - Pericardial effusion [Unknown]
  - Angioedema [Unknown]
  - Bone lesion [Unknown]
  - Magnesium metabolism disorder [Unknown]
  - Lymphoma [Unknown]
  - Leukaemia [Unknown]
  - Skin oedema [Unknown]
  - Biliary dilatation [Unknown]
  - Ascites [Unknown]
  - Intestinal dilatation [Not Recovered/Not Resolved]
  - Ileus paralytic [Unknown]
  - Aortic calcification [Unknown]
  - Aortic arteriosclerosis [Unknown]
  - Febrile neutropenia [Unknown]
  - Lung disorder [Unknown]
  - Inspiratory capacity decreased [Unknown]
  - Skin abrasion [Unknown]
  - Tibia fracture [Unknown]
  - Chronic obstructive pulmonary disease [Unknown]
  - Umbilical hernia [Unknown]
  - Hyperglycaemia [Unknown]
  - Tympanic membrane perforation [Unknown]
  - Bone pain [Unknown]
  - Neck mass [Unknown]
  - Sinus disorder [Unknown]
  - Transient ischaemic attack [Unknown]
  - Asthenia [Unknown]
  - Dehydration [Unknown]
  - Chest pain [Unknown]
  - Pyrexia [Unknown]
  - Peripheral swelling [Recovering/Resolving]
  - Dysphagia [Unknown]
  - Hypercalcaemia [Unknown]
  - Hypouricaemia [Unknown]
  - Renal failure chronic [Unknown]
  - Hepatic enzyme increased [Unknown]
  - Blood creatine phosphokinase increased [Unknown]
  - Haemoptysis [Unknown]
  - Osteomyelitis [Unknown]
  - Cardiac murmur [Unknown]
  - Osteoporosis [Unknown]
  - Pathological fracture [Unknown]
  - Impaired gastric emptying [Unknown]
  - Hypokalaemia [Unknown]
  - Gastrooesophageal reflux disease [Unknown]
  - Coronary artery disease [Unknown]
  - Paraesthesia [Recovering/Resolving]
  - Spinal compression fracture [Unknown]
  - Rectal haemorrhage [Unknown]
  - Dizziness [Unknown]
  - Fibula fracture [Unknown]
  - Pneumonia [Unknown]
  - Soft tissue disorder [Unknown]
  - Cerebral small vessel ischaemic disease [Unknown]
  - Osteoarthritis [Unknown]
  - Intervertebral disc space narrowing [Unknown]
  - Dyslipidaemia [Unknown]
  - Fatigue [Unknown]
  - Decreased appetite [Unknown]
  - Sinusitis [Unknown]
  - Intermittent claudication [Unknown]
  - Loss of consciousness [Unknown]
  - Respiratory distress [Unknown]
  - Acute myocardial infarction [Unknown]
  - Hallucination [Unknown]
  - Mountain sickness acute [Unknown]
  - Delusion [Unknown]
  - Gastric disorder [Unknown]
  - Scrotal swelling [Unknown]
  - Mitral valve incompetence [Unknown]
  - Tricuspid valve incompetence [Unknown]
  - Sepsis [Unknown]
  - Axillary vein thrombosis [Unknown]
  - Oedema peripheral [Unknown]
  - Lung infiltration [Unknown]
  - Pancytopenia [Unknown]
  - Hyperuricaemia [Unknown]
  - Delirium [Unknown]
  - Protrusion tongue [Unknown]
  - Agitation [Unknown]
  - Psychotic disorder [Unknown]
  - Epistaxis [Unknown]
  - Pulmonary congestion [Unknown]
  - Urinary incontinence [Unknown]
  - Tongue oedema [Unknown]
  - Bone disorder [Unknown]
  - Wound [Unknown]
  - Myoclonus [Unknown]
  - Confusional state [Unknown]
  - Dyspnoea exertional [Unknown]
  - Lethargy [Unknown]
  - Muscular weakness [Unknown]
  - Wheezing [Unknown]
  - Tenderness [Unknown]
  - Osteitis [Unknown]
  - Bone swelling [Unknown]
  - Erythema [Unknown]
